FAERS Safety Report 6165453-X (Version None)
Quarter: 2009Q2

REPORT INFORMATION
  Report Type: 
  Country: None (occurrence: None)
  Receive Date: 20090423
  Receipt Date: 20090421
  Transmission Date: 20091009
  Serious: No
  Sender: FDA-Public Use
  Company Number: US-B.I. PHARMACEUTICALS,INC./RIDGEFIELD-2009-BP-04951BP

PATIENT
  Age: 82 Year
  Sex: Male

DRUGS (1)
  1. ATROVENT HFA [Suspect]
     Dosage: 68MCG
     Route: 055
     Dates: start: 19990101

REACTIONS (1)
  - DECREASED BRONCHIAL SECRETION [None]
